FAERS Safety Report 9302310 (Version 2)
Quarter: 2013Q2

REPORT INFORMATION
  Report Type: Spontaneous
  Country: US (occurrence: US)
  Receive Date: 20130522
  Receipt Date: 20130617
  Transmission Date: 20140414
  Serious: Yes (Hospitalization, Other)
  Sender: FDA-Public Use
  Company Number: US-009507513-1305USA011315

PATIENT
  Age: 20 Year
  Sex: Female
  Weight: 77.55 kg

DRUGS (3)
  1. NEXPLANON [Suspect]
     Indication: CONTRACEPTION
     Dosage: 1 ROD
     Route: 059
     Dates: start: 20130509, end: 20130517
  2. SINGULAIR [Concomitant]
     Route: 048
  3. VALIUM [Concomitant]

REACTIONS (7)
  - Convulsion [Recovered/Resolved]
  - Implant site erythema [Recovered/Resolved]
  - Implant site swelling [Recovered/Resolved]
  - Implant site discharge [Recovered/Resolved]
  - Implant site infection [Recovered/Resolved]
  - White blood cell count increased [Recovering/Resolving]
  - Fatigue [Recovered/Resolved]
